FAERS Safety Report 13856269 (Version 1)
Quarter: 2017Q3

REPORT INFORMATION
  Report Type: Spontaneous
  Country: US (occurrence: US)
  Receive Date: 20170810
  Receipt Date: 20170810
  Transmission Date: 20171127
  Serious: No
  Sender: FDA-Public Use
  Company Number: US-DEPOMED, INC.-US-2016DEP013128

PATIENT

DRUGS (2)
  1. ZIPSOR [Suspect]
     Active Substance: DICLOFENAC POTASSIUM
     Dosage: 25 MG, PRN
     Route: 048
     Dates: start: 2016
  2. ZIPSOR [Suspect]
     Active Substance: DICLOFENAC POTASSIUM
     Indication: FOOT DEFORMITY
     Dosage: 25 MG, QID
     Route: 048
     Dates: start: 20161028, end: 2016

REACTIONS (1)
  - Gastritis [Unknown]

NARRATIVE: CASE EVENT DATE: 2016
